FAERS Safety Report 6721542-X (Version None)
Quarter: 2010Q2

REPORT INFORMATION
  Report Type: 
  Country: None (occurrence: None)
  Receive Date: 20100512
  Receipt Date: 20100503
  Transmission Date: 20101027
  Serious: Yes (Hospitalization)
  Sender: FDA-Public Use
  Company Number: ES-ASTRAZENECA-2010SE04687

PATIENT
  Age: 41 Year
  Sex: Male
  Weight: 97 kg

DRUGS (3)
  1. CRESTOR [Suspect]
     Indication: DYSLIPIDAEMIA
     Route: 048
     Dates: start: 20091218, end: 20100127
  2. ATACAND [Concomitant]
     Indication: HYPERTENSION
     Route: 048
     Dates: start: 20091218, end: 20100127
  3. ARTEDIL [Concomitant]
     Indication: HYPERTENSION
     Route: 065
     Dates: start: 20091218, end: 20100127

REACTIONS (1)
  - HEPATITIS CHOLESTATIC [None]
